FAERS Safety Report 8996766 (Version 1)
Quarter: 2013Q1

REPORT INFORMATION
  Report Type: Spontaneous
  Country: DE (occurrence: DE)
  Receive Date: 20130104
  Receipt Date: 20130104
  Transmission Date: 20140127
  Serious: Yes (Other)
  Sender: FDA-Public Use
  Company Number: DE-SANOFI-AVENTIS-2013SA000354

PATIENT
  Age: 65 Year
  Sex: Female
  Weight: 74 kg

DRUGS (1)
  1. TELFAST [Suspect]
     Indication: URTICARIA
     Route: 048
     Dates: start: 20121204, end: 20121206

REACTIONS (1)
  - Hepatotoxicity [Recovered/Resolved]
